FAERS Safety Report 4493156-6 (Version None)
Quarter: 2004Q4

REPORT INFORMATION
  Report Type: 
  Country: None (occurrence: None)
  Receive Date: 20041104
  Receipt Date: 20041025
  Transmission Date: 20050328
  Serious: Yes (Death, Life-Threatening, Hospitalization)
  Sender: FDA-Public Use
  Company Number: DE-ROCHE-384188

PATIENT
  Age: 22 Year
  Sex: Female

DRUGS (23)
  1. DACLIZUMAB [Suspect]
     Route: 042
     Dates: start: 20041006, end: 20041006
  2. DACLIZUMAB [Suspect]
     Route: 042
     Dates: start: 20041013, end: 20041013
  3. MYCOPHENOLATE MOFETIL [Suspect]
     Route: 048
     Dates: start: 20041007, end: 20041025
  4. CYCLOSPORINE [Suspect]
     Dosage: DOSE REPORTED AS TAPER
     Route: 048
     Dates: start: 20041007, end: 20041025
  5. PREDNISOLONE [Suspect]
     Route: 048
     Dates: start: 20041007, end: 20041024
  6. PREDNISOLONE [Suspect]
     Route: 048
     Dates: start: 20041025, end: 20041028
  7. SIROLIMUS [Concomitant]
     Dates: start: 20041025
  8. PIPERACILLIN [Concomitant]
     Route: 042
     Dates: start: 20041006, end: 20041025
  9. TAZOBACTAM [Concomitant]
     Route: 042
     Dates: start: 20041006, end: 20041025
  10. MEROPENEM [Concomitant]
     Route: 042
     Dates: start: 20041006, end: 20041025
  11. VORICONAZOL [Concomitant]
     Route: 048
     Dates: start: 20041007, end: 20041028
  12. RANITIDINE [Concomitant]
     Route: 048
     Dates: start: 20041007, end: 20041028
  13. ITRACONAZOL [Concomitant]
     Dates: start: 20041007, end: 20041024
  14. COTRIMOXAZOL [Concomitant]
     Dates: start: 20041012, end: 20041024
  15. CALCIUM [Concomitant]
     Route: 048
     Dates: start: 20041008, end: 20041024
  16. MAGNESIUM [Concomitant]
     Route: 048
     Dates: start: 20041008, end: 20041024
  17. FUROSEMIDE [Concomitant]
     Route: 048
     Dates: start: 20041008, end: 20041024
  18. VIGANTOLETTEN [Concomitant]
     Route: 048
     Dates: start: 20041009, end: 20041024
  19. KREON [Concomitant]
     Route: 048
     Dates: start: 20041010, end: 20041024
  20. URSODEOXYCHOLIC ACID [Concomitant]
     Route: 048
     Dates: start: 20041009, end: 20041024
  21. EISEN(II)-GLYCIN-SULFAT-KOMPLEX [Concomitant]
     Route: 048
     Dates: start: 20041012, end: 20041024
  22. AMFOTERICIN B [Concomitant]
     Route: 048
     Dates: start: 20041007, end: 20041028
  23. SALBUTAMOL [Concomitant]
     Route: 055
     Dates: start: 20041007, end: 20041024

REACTIONS (3)
  - BRAIN OEDEMA [None]
  - CARDIAC ARREST [None]
  - CONVULSION [None]
